FAERS Safety Report 9120985 (Version 1)
Quarter: 2013Q1

REPORT INFORMATION
  Report Type: Spontaneous
  Country: US (occurrence: US)
  Receive Date: 20130226
  Receipt Date: 20130226
  Transmission Date: 20140127
  Serious: Yes (Other)
  Sender: FDA-Public Use
  Company Number: CHPA2013US003230

PATIENT
  Age: 53 Year
  Sex: Female

DRUGS (1)
  1. PRIVATE LABEL [Suspect]
     Indication: SMOKING CESSATION THERAPY
     Dosage: 21 MG, QD
     Route: 062

REACTIONS (4)
  - Asthma [Recovered/Resolved]
  - Joint swelling [Recovered/Resolved]
  - Drug effect increased [Unknown]
  - Incorrect drug administration duration [Unknown]
